FAERS Safety Report 5754324-6 (Version None)
Quarter: 2008Q2

REPORT INFORMATION
  Report Type: 
  Country: None (occurrence: None)
  Receive Date: 20080530
  Receipt Date: 20080521
  Transmission Date: 20081010
  Serious: Yes (Congenital Anomaly, Other)
  Sender: FDA-Public Use
  Company Number: GB-ABBOTT-08P-167-0441156-00

PATIENT
  Sex: Male
  Weight: 3.01 kg

DRUGS (1)
  1. VALPROIC ACID [Suspect]
     Indication: DRUG EXPOSURE DURING PREGNANCY
     Route: 064

REACTIONS (44)
  - ACROCHORDON [None]
  - ANOMALY OF EXTERNAL EAR CONGENITAL [None]
  - ATAXIA [None]
  - BALANCE DISORDER [None]
  - CARDIOMEGALY [None]
  - CHALAZION [None]
  - CONGENITAL ANOMALY [None]
  - CONGENITAL EYELID MALFORMATION [None]
  - CONGENITAL HAND MALFORMATION [None]
  - CONGENITAL NOSE MALFORMATION [None]
  - CRYPTORCHISM [None]
  - DEVELOPMENTAL DELAY [None]
  - DRUG EXPOSURE DURING PREGNANCY [None]
  - DRY SKIN [None]
  - DYSGRAPHIA [None]
  - DYSMORPHISM [None]
  - ERYTHEMA [None]
  - FOETAL ANTICONVULSANT SYNDROME [None]
  - FOOT DEFORMITY [None]
  - GAIT DISTURBANCE [None]
  - GRAND MAL CONVULSION [None]
  - HAEMANGIOMA [None]
  - HOLOPROSENCEPHALY [None]
  - HYPOSPADIAS [None]
  - HYPOTONIA [None]
  - KERATOSIS PILARIS [None]
  - KNEE DEFORMITY [None]
  - LIMB MALFORMATION [None]
  - LIP DISORDER [None]
  - LOW SET EARS [None]
  - MICROCEPHALY [None]
  - NIPPLE DISORDER [None]
  - OTITIS MEDIA [None]
  - PELVIC MASS [None]
  - PHYSICAL DISABILITY [None]
  - PLAGIOCEPHALY [None]
  - READING DISORDER [None]
  - SKULL MALFORMATION [None]
  - SPEECH DISORDER [None]
  - SPEECH DISORDER DEVELOPMENTAL [None]
  - SPLENOMEGALY [None]
  - STAPHYLOCOCCAL INFECTION [None]
  - SUBDURAL HAEMORRHAGE [None]
  - SUPERNUMERARY NIPPLE [None]
